FAERS Safety Report 8832543 (Version 2)
Quarter: 2013Q2

REPORT INFORMATION
  Report Type: Report from Study
  Country: JP (occurrence: JP)
  Receive Date: 20121010
  Receipt Date: 20130531
  Transmission Date: 20140414
  Serious: Yes (Other)
  Sender: FDA-Public Use
  Company Number: JP-009507513-1210JPN003016

PATIENT
  Age: 65 Year
  Sex: Male
  Weight: 75 kg

DRUGS (18)
  1. PEGINTRON [Suspect]
     Indication: CHRONIC HEPATITIS C
     Dosage: 1.5 MICROGRAM PER KILOGRAM, QW
     Route: 058
     Dates: start: 20120822, end: 20120910
  2. REBETOL [Suspect]
     Indication: CHRONIC HEPATITIS C
     Dosage: 800 MG, QD
     Route: 048
     Dates: start: 20120822, end: 20120910
  3. TELAVIC [Suspect]
     Indication: CHRONIC HEPATITIS C
     Dosage: 1500 MG, QD
     Route: 048
     Dates: start: 20120822, end: 20120906
  4. LENDORMIN [Concomitant]
     Indication: BIPOLAR DISORDER
     Dosage: 0.25 MG PER DAY, AS NEEDED
     Route: 048
  5. IMPROMEN [Concomitant]
     Indication: BIPOLAR DISORDER
     Dosage: 1 MG, QD, FORMULATION:FGR
     Route: 048
  6. SILECE [Concomitant]
     Indication: BIPOLAR DISORDER
     Dosage: 1 MG/DAY, AS NEEDED
     Route: 048
  7. VOGLIBOSE [Concomitant]
     Indication: DIABETES MELLITUS
     Dosage: 0.9 MG, QD
     Route: 048
  8. METGLUCO [Concomitant]
     Indication: DIABETES MELLITUS
     Dosage: 750 MG, QD
     Route: 048
  9. ACTOS [Concomitant]
     Indication: DIABETES MELLITUS
     Dosage: 30 MG, QD
     Route: 048
  10. NOVORAPID [Concomitant]
     Indication: DIABETES MELLITUS
     Dosage: 18 DF, QD
     Route: 058
  11. ATARAX P [Concomitant]
     Indication: BIPOLAR DISORDER
     Dosage: 50 MG, QD
     Route: 048
     Dates: end: 20120903
  12. PL-GRANULES [Concomitant]
     Indication: CHRONIC OBSTRUCTIVE PULMONARY DISEASE
     Dosage: 4 G, QD
     Route: 048
     Dates: end: 20120820
  13. ZETIA [Concomitant]
     Indication: HYPERLIPIDAEMIA
     Dosage: 10 MG, QD
     Route: 048
     Dates: end: 20120910
  14. SELENICA R [Concomitant]
     Indication: BIPOLAR DISORDER
     Dosage: 400 MG, QD
     Route: 048
  15. DEPAS [Concomitant]
     Indication: BIPOLAR DISORDER
     Dosage: 1 MG, QD
     Route: 048
  16. VEGETAMIN B [Concomitant]
     Indication: BIPOLAR DISORDER
     Dosage: 1 DF, QD
     Route: 048
  17. MICOMBI [Concomitant]
     Indication: HYPERTENSION
     Dosage: 1 DF, QD
     Route: 048
     Dates: start: 20120826, end: 20120910
  18. MUCODYNE [Concomitant]
     Indication: CHRONIC OBSTRUCTIVE PULMONARY DISEASE
     Dosage: 1500 MG,QD
     Route: 048
     Dates: end: 20120903

REACTIONS (2)
  - Renal impairment [Recovering/Resolving]
  - Hyperuricaemia [Recovered/Resolved]
